FAERS Safety Report 11397809 (Version 1)
Quarter: 2015Q3

REPORT INFORMATION
  Report Type: Report from Study
  Country: US (occurrence: US)
  Receive Date: 20150819
  Receipt Date: 20150819
  Transmission Date: 20151125
  Serious: Yes (Hospitalization)
  Sender: FDA-Public Use
  Company Number: US-SA-2015SA121646

PATIENT
  Age: 67 Year
  Sex: Female

DRUGS (8)
  1. AFLIBERCEPT [Suspect]
     Active Substance: AFLIBERCEPT
     Indication: RECTAL ADENOCARCINOMA
     Route: 042
     Dates: start: 20150729, end: 20150729
  2. LEUCOVORIN. [Suspect]
     Active Substance: LEUCOVORIN
     Indication: RECTAL ADENOCARCINOMA
     Route: 042
     Dates: start: 20150415, end: 20150415
  3. OXALIPLATIN. [Suspect]
     Active Substance: OXALIPLATIN
     Indication: RECTAL ADENOCARCINOMA
     Route: 042
     Dates: start: 20150729, end: 20150729
  4. AFLIBERCEPT [Suspect]
     Active Substance: AFLIBERCEPT
     Indication: RECTAL ADENOCARCINOMA
     Route: 042
     Dates: start: 20150415, end: 20150415
  5. OXALIPLATIN. [Suspect]
     Active Substance: OXALIPLATIN
     Indication: RECTAL ADENOCARCINOMA
     Route: 042
     Dates: start: 20150415, end: 20150415
  6. 5 FU [Suspect]
     Active Substance: FLUOROURACIL
     Indication: RECTAL ADENOCARCINOMA
     Route: 042
     Dates: start: 20150415
  7. LEUCOVORIN. [Suspect]
     Active Substance: LEUCOVORIN
     Indication: RECTAL ADENOCARCINOMA
     Route: 042
     Dates: start: 20150729, end: 20150729
  8. 5 FU [Suspect]
     Active Substance: FLUOROURACIL
     Indication: RECTAL ADENOCARCINOMA
     Route: 042
     Dates: start: 20150429, end: 20150731

REACTIONS (5)
  - Proctalgia [Unknown]
  - Hyperhidrosis [Unknown]
  - Anorectal discomfort [Unknown]
  - Rectal discharge [Unknown]
  - Chills [Unknown]

NARRATIVE: CASE EVENT DATE: 20150808
